FAERS Safety Report 18052195 (Version 2)
Quarter: 2020Q3

REPORT INFORMATION
  Report Type: Spontaneous
  Country: DE (occurrence: DE)
  Receive Date: 20200721
  Receipt Date: 20200723
  Transmission Date: 20201103
  Serious: Yes (Other)
  Sender: FDA-Public Use
  Company Number: NVSC2020DE202794

PATIENT
  Sex: Female

DRUGS (6)
  1. TILIDINE [Concomitant]
     Active Substance: TILIDINE
     Indication: PRODUCT USED FOR UNKNOWN INDICATION
     Dosage: UNK
     Route: 065
  2. KISQALI [Suspect]
     Active Substance: RIBOCICLIB
     Indication: METASTASIS
     Dosage: 600 MG
     Route: 065
     Dates: start: 202002, end: 2020
  3. ZOLPIDEM [Concomitant]
     Active Substance: ZOLPIDEM TARTRATE
     Indication: PRODUCT USED FOR UNKNOWN INDICATION
     Dosage: UNK (AS NEEDED)
     Route: 065
  4. ZOLADEX [Concomitant]
     Active Substance: GOSERELIN ACETATE
     Indication: PRODUCT USED FOR UNKNOWN INDICATION
     Dosage: UNK
     Route: 065
     Dates: start: 202002
  5. KISQALI [Suspect]
     Active Substance: RIBOCICLIB
     Dosage: 200 MG, QD (2?0?0)
     Route: 065
     Dates: start: 202003
  6. LETROZOLE. [Concomitant]
     Active Substance: LETROZOLE
     Indication: PRODUCT USED FOR UNKNOWN INDICATION
     Dosage: UNK
     Route: 065
     Dates: start: 202002

REACTIONS (1)
  - Electrocardiogram QT prolonged [Not Recovered/Not Resolved]
